FAERS Safety Report 8083595-9 (Version None)
Quarter: 2012Q1

REPORT INFORMATION
  Report Type: 
  Country: None (occurrence: None)
  Receive Date: 20120127
  Receipt Date: 20110126
  Transmission Date: 20120608
  Serious: No
  Sender: FDA-Public Use
  Company Number: US-ABBOTT-11P-163-0700977-00

PATIENT
  Age: 51 Year
  Sex: Female

DRUGS (9)
  1. PREDNISONE TAB [Concomitant]
     Indication: INFLAMMATION
  2. SAVALLIA [Concomitant]
     Indication: FIBROMYALGIA
  3. MORPHINE COTTIN [Concomitant]
     Indication: ARTHRALGIA
  4. ZOCOR [Concomitant]
     Indication: BLOOD CHOLESTEROL INCREASED
  5. OXYCODONE HCL [Concomitant]
     Indication: ARTHRALGIA
     Dosage: 1 EVERY 4 HRS PRN RA PAIN
  6. HUMIRA [Suspect]
     Indication: RHEUMATOID ARTHRITIS
     Dates: start: 20090801
  7. METHOTREXATE [Concomitant]
     Indication: RHEUMATOID ARTHRITIS
  8. SINGULAIR [Concomitant]
     Indication: SEASONAL ALLERGY
  9. VITAMIN D [Concomitant]
     Indication: VITAMIN D DECREASED

REACTIONS (3)
  - WRONG TECHNIQUE IN DRUG USAGE PROCESS [None]
  - OEDEMA PERIPHERAL [None]
  - ARTHRALGIA [None]
